FAERS Safety Report 12492381 (Version 2)
Quarter: 2016Q2

REPORT INFORMATION
  Report Type: Spontaneous
  Country: JP (occurrence: JP)
  Receive Date: 20160623
  Receipt Date: 20160630
  Transmission Date: 20160815
  Serious: Yes (Hospitalization, Other)
  Sender: FDA-Public Use
  Company Number: JP-PFIZER INC-2016310016

PATIENT
  Age: 61 Year
  Sex: Male

DRUGS (6)
  1. TAKEPRON [Concomitant]
     Active Substance: LANSOPRAZOLE
     Indication: BACK PAIN
     Dosage: UNK
     Dates: start: 20160613
  2. LYRICA [Suspect]
     Active Substance: PREGABALIN
     Indication: BACK PAIN
     Dosage: UNK
     Route: 048
     Dates: start: 20160613
  3. CELECOX [Suspect]
     Active Substance: CELECOXIB
     Indication: BACK PAIN
     Dosage: 100 MG, UNK
     Route: 048
     Dates: start: 20160613
  4. MUCOSTA [Suspect]
     Active Substance: REBAMIPIDE
     Indication: BACK PAIN
     Dosage: UNK
     Route: 048
     Dates: start: 20160613
  5. CELECOX [Suspect]
     Active Substance: CELECOXIB
     Indication: BACK PAIN
  6. VONOPRAZAN [Suspect]
     Active Substance: VONOPRAZAN
     Route: 048

REACTIONS (2)
  - Interstitial lung disease [Recovering/Resolving]
  - Respiratory failure [Not Recovered/Not Resolved]

NARRATIVE: CASE EVENT DATE: 20160620
